FAERS Safety Report 13053229 (Version 1)
Quarter: 2016Q4

REPORT INFORMATION
  Report Type: Spontaneous
  Country: None (occurrence: US)
  Receive Date: 20161221
  Receipt Date: 20161221
  Transmission Date: 20170207
  Serious: No
  Sender: FDA-Public Use
  Company Number: None

PATIENT
  Age: 51 Year
  Sex: Male
  Weight: 87.2 kg

DRUGS (1)
  1. IPILIMUMAB (BMS-734016; MDX-010 TRANSFECTOMA-DERIVED) [Suspect]
     Active Substance: IPILIMUMAB
     Dates: end: 20160531

REACTIONS (4)
  - Blood creatine phosphokinase increased [None]
  - Aspartate aminotransferase increased [None]
  - Alanine aminotransferase increased [None]
  - Diarrhoea [None]

NARRATIVE: CASE EVENT DATE: 20160713
